FAERS Safety Report 11013765 (Version 2)
Quarter: 2015Q2

REPORT INFORMATION
  Report Type: Spontaneous
  Country: US (occurrence: US)
  Receive Date: 20150412
  Receipt Date: 20150526
  Transmission Date: 20150821
  Serious: No
  Sender: FDA-Public Use
  Company Number: US-JNJFOC-20131016975

PATIENT
  Sex: Female
  Weight: 61.24 kg

DRUGS (1)
  1. PANCREAZE [Suspect]
     Active Substance: PANCRELIPASE
     Indication: PANCREATITIS
     Route: 048
     Dates: start: 2013

REACTIONS (4)
  - Abdominal pain upper [Recovered/Resolved]
  - Dizziness [Unknown]
  - Blood pressure decreased [Unknown]
  - Flatulence [Unknown]

NARRATIVE: CASE EVENT DATE: 2013
